FAERS Safety Report 9518165 (Version 1)
Quarter: 2013Q1

REPORT INFORMATION
  Report Type: Spontaneous
  Country: US (occurrence: None)
  Receive Date: 20130305
  Receipt Date: 20130305
  Transmission Date: 20140127
  Serious: Yes (Other)
  Sender: FDA-Public Use
  Company Number: 163-21880-12121211

PATIENT
  Sex: 0

DRUGS (2)
  1. REVLIMID (LENALIDOMIDE) (CAPSULES) [Suspect]
     Indication: DIFFUSE LARGE B-CELL LYMPHOMA
     Dosage: 25 MG, 21 IN 28 D, PO
     Route: 048
  2. RITUXIMAB (RITUXIMAB) [Suspect]
     Indication: DIFFUSE LARGE B-CELL LYMPHOMA

REACTIONS (7)
  - Deep vein thrombosis [None]
  - Neutropenia [None]
  - Febrile neutropenia [None]
  - Diarrhoea [None]
  - Fatigue [None]
  - Rash [None]
  - Hypothyroidism [None]
